FAERS Safety Report 9792143 (Version 1)
Quarter: 2013Q4

REPORT INFORMATION
  Report Type: Spontaneous
  Country: US (occurrence: None)
  Receive Date: 20131231
  Receipt Date: 20131231
  Transmission Date: 20140711
  Serious: Yes (Other)
  Sender: FDA-Public Use
  Company Number: None

PATIENT
  Age: 76 Year
  Sex: Female
  Weight: 58.97 kg

DRUGS (1)
  1. ITRACONAZOLE [Suspect]
     Dosage: 40 PER DAY 7 DAYS
     Dates: start: 20131209, end: 20131216

REACTIONS (2)
  - Rash pruritic [None]
  - Rash erythematous [None]
